FAERS Safety Report 18960370 (Version 6)
Quarter: 2024Q1

REPORT INFORMATION
  Report Type: Spontaneous
  Country: US (occurrence: US)
  Receive Date: 20210302
  Receipt Date: 20240103
  Transmission Date: 20240409
  Serious: Yes (Other)
  Sender: FDA-Public Use
  Company Number: US-PFIZER INC-2020487147

PATIENT
  Age: 67 Year
  Sex: Male

DRUGS (5)
  1. XELJANZ XR [Suspect]
     Active Substance: TOFACITINIB CITRATE
     Indication: Rheumatoid arthritis
     Dosage: 11 MG, 1X/DAY
     Route: 048
  2. XELJANZ XR [Suspect]
     Active Substance: TOFACITINIB CITRATE
     Indication: Polyarthritis
  3. NALTREXONE [Suspect]
     Active Substance: NALTREXONE
     Dosage: UNK
  4. PREDNISONE [Concomitant]
     Active Substance: PREDNISONE
     Dosage: 2.5 MG
  5. NEXTERONE [Concomitant]
     Active Substance: AMIODARONE HYDROCHLORIDE
     Dosage: UNK

REACTIONS (17)
  - Spinal operation [Unknown]
  - Nausea [Recovered/Resolved]
  - Arthralgia [Not Recovered/Not Resolved]
  - Muscle spasms [Unknown]
  - Neck pain [Not Recovered/Not Resolved]
  - Arthralgia [Unknown]
  - Sciatica [Not Recovered/Not Resolved]
  - Pain in extremity [Unknown]
  - Hypoaesthesia [Unknown]
  - Carpal tunnel syndrome [Unknown]
  - Musculoskeletal stiffness [Unknown]
  - Increased tendency to bruise [Unknown]
  - Tremor [Unknown]
  - Paraesthesia [Unknown]
  - Dyspnoea [Unknown]
  - Eye pruritus [Unknown]
  - Arthropathy [Unknown]
